FAERS Safety Report 6684167-0 (Version None)
Quarter: 2010Q2

REPORT INFORMATION
  Report Type: 
  Country: None (occurrence: None)
  Receive Date: 20100416
  Receipt Date: 20100407
  Transmission Date: 20101027
  Serious: Yes (Other)
  Sender: FDA-Public Use
  Company Number: US-ABBOTT-10P-163-0636994-00

PATIENT
  Age: 61 Year
  Sex: Male
  Weight: 82.628 kg

DRUGS (3)
  1. VICODIN [Suspect]
     Indication: PAIN
  2. MOTRIN [Suspect]
     Indication: PAIN
     Route: 048
     Dates: start: 20091117, end: 20100117
  3. ASPIRIN [Suspect]
     Indication: PAIN
     Dates: start: 20091117

REACTIONS (4)
  - DRUG INEFFECTIVE [None]
  - HAEMORRHAGE [None]
  - INCORRECT DOSE ADMINISTERED [None]
  - ULCER [None]
